FAERS Safety Report 4292305-2 (Version None)
Quarter: 2004Q1

REPORT INFORMATION
  Report Type: 
  Country: None (occurrence: None)
  Receive Date: 20040126
  Receipt Date: 20031117
  Transmission Date: 20041129
  Serious: No
  Sender: FDA-Public Use
  Company Number: USA031152697

PATIENT
  Age: 83 Year
  Sex: Female

DRUGS (4)
  1. FORTEO [Suspect]
     Indication: OSTEOPOROSIS
     Dosage: 20 UG/DAY
     Dates: start: 20031114
  2. PREDNISONE [Concomitant]
  3. PULMICORT [Concomitant]
  4. NEURONTIN [Concomitant]

REACTIONS (6)
  - DIFFICULTY IN WALKING [None]
  - DIZZINESS [None]
  - MUSCULOSKELETAL STIFFNESS [None]
  - NAUSEA [None]
  - PULMONARY CONGESTION [None]
  - SWELLING [None]
